FAERS Safety Report 24623575 (Version 1)
Quarter: 2024Q4

REPORT INFORMATION
  Report Type: Report from Study
  Country: JP (occurrence: JP)
  Receive Date: 20241115
  Receipt Date: 20241115
  Transmission Date: 20250114
  Serious: Yes (Other)
  Sender: ROCHE
  Company Number: JP-ROCHE-10000127182

PATIENT

DRUGS (5)
  1. ATEZOLIZUMAB [Suspect]
     Active Substance: ATEZOLIZUMAB
     Indication: Neoplasm malignant
     Route: 065
  2. PEMBROLIZUMAB [Suspect]
     Active Substance: PEMBROLIZUMAB
     Indication: Neoplasm malignant
     Route: 065
  3. NIVOLUMAB [Suspect]
     Active Substance: NIVOLUMAB
     Indication: Neoplasm malignant
     Route: 065
  4. DURVALUMAB [Suspect]
     Active Substance: DURVALUMAB
     Indication: Neoplasm malignant
     Route: 065
  5. IPILIMUMAB [Suspect]
     Active Substance: IPILIMUMAB
     Indication: Neoplasm malignant
     Route: 065

REACTIONS (14)
  - Liver disorder [Unknown]
  - Neutropenia [Unknown]
  - Thrombocytopenia [Unknown]
  - Adrenal insufficiency [Unknown]
  - Hypothalamo-pituitary disorder [Unknown]
  - Type 1 diabetes mellitus [Unknown]
  - Glucose tolerance impaired [Unknown]
  - Thyroid disorder [Unknown]
  - Rash [Unknown]
  - Synovitis [Unknown]
  - Interstitial lung disease [Unknown]
  - Rheumatoid arthritis [Unknown]
  - Hypopituitarism [Unknown]
  - Biliary tract disorder [Unknown]
